FAERS Safety Report 9462186 (Version 1)
Quarter: 2013Q3

REPORT INFORMATION
  Report Type: Spontaneous
  Country: PL (occurrence: PL)
  Receive Date: 20130816
  Receipt Date: 20130816
  Transmission Date: 20140515
  Serious: Yes (Other)
  Sender: FDA-Public Use
  Company Number: PL-ROXANE LABORATORIES, INC.-2013-RO-01331RO

PATIENT
  Age: 47 Year
  Sex: Female

DRUGS (8)
  1. CYCLOPHOSPHAMIDE TABLETS USP [Suspect]
     Indication: LUPUS NEPHRITIS
  2. MYCOPHENOLATE MOFETIL [Suspect]
     Indication: LUPUS NEPHRITIS
  3. PREDNISONE [Suspect]
     Indication: LUPUS NEPHRITIS
     Dosage: 20 MG
  4. IMMUNOGLOBULIN [Suspect]
     Indication: LUPUS NEPHRITIS
  5. GLYCOCORTICOIDS [Suspect]
     Indication: LUPUS NEPHRITIS
     Route: 042
  6. CHLOROQUINE [Suspect]
     Indication: LUPUS NEPHRITIS
     Dosage: 0.25 MG
  7. ENOXAPARIN [Suspect]
     Indication: LUPUS NEPHRITIS
  8. WARFARIN [Suspect]
     Indication: LUPUS NEPHRITIS

REACTIONS (2)
  - Herpes zoster [Unknown]
  - Urosepsis [Unknown]
